FAERS Safety Report 17242824 (Version 1)
Quarter: 2019Q4

REPORT INFORMATION
  Report Type: Spontaneous
  Country: US (occurrence: US)
  Receive Date: 20191212
  Receipt Date: 20191212
  Transmission Date: 20200122
  Serious: Yes (Hospitalization)
  Sender: FDA-Public Use
  Company Number: None

PATIENT
  Age: 71 Year

DRUGS (24)
  1. ADVAIR HFA [Concomitant]
     Active Substance: FLUTICASONE PROPIONATE\SALMETEROL XINAFOATE
  2. ALBUTEROL. [Concomitant]
     Active Substance: ALBUTEROL
  3. LEVOFLOXACIN. [Concomitant]
     Active Substance: LEVOFLOXACIN
  4. POTASSIUM [Concomitant]
     Active Substance: POTASSIUM
  5. SPRYCELL [Concomitant]
  6. ATIVAN [Concomitant]
     Active Substance: LORAZEPAM
  7. LORAZEPAM. [Concomitant]
     Active Substance: LORAZEPAM
  8. MONTELUKAST [Concomitant]
     Active Substance: MONTELUKAST SODIUM
  9. AMITRIPTYLIN [Concomitant]
     Active Substance: AMITRIPTYLINE
  10. BENZONATE [Concomitant]
     Active Substance: BENZONATATE
  11. PRASUGREL. [Concomitant]
     Active Substance: PRASUGREL
  12. PREDNISONE. [Concomitant]
     Active Substance: PREDNISONE
  13. VIT B1 [Concomitant]
     Active Substance: THIAMINE HYDROCHLORIDE
  14. ZYRTEC [Concomitant]
     Active Substance: CETIRIZINE HYDROCHLORIDE
  15. ATORVASTATIN [Concomitant]
     Active Substance: ATORVASTATIN
  16. CELEXA [Concomitant]
     Active Substance: CITALOPRAM HYDROBROMIDE
  17. METOPROLOL TARTRATE. [Concomitant]
     Active Substance: METOPROLOL TARTRATE
  18. PANTOPROZOLE [Concomitant]
  19. VFEND [Concomitant]
     Active Substance: VORICONAZOLE
  20. RAMPRIL [Concomitant]
     Active Substance: RAMIPRIL
  21. TASIGNA [Suspect]
     Active Substance: NILOTINIB
     Indication: ACUTE LYMPHOCYTIC LEUKAEMIA
     Route: 048
     Dates: start: 20190328
  22. FAMOTIDINE. [Concomitant]
     Active Substance: FAMOTIDINE
  23. HYDROCO/APAP [Concomitant]
     Active Substance: ACETAMINOPHEN\HYDROCODONE
  24. VALACYCLOVIR [Concomitant]
     Active Substance: VALACYCLOVIR HYDROCHLORIDE

REACTIONS (3)
  - Dyspnoea [None]
  - Nasopharyngitis [None]
  - Influenza like illness [None]

NARRATIVE: CASE EVENT DATE: 20191202
